FAERS Safety Report 25274759 (Version 1)
Quarter: 2025Q2

REPORT INFORMATION
  Report Type: Spontaneous
  Country: US (occurrence: US)
  Receive Date: 20250506
  Receipt Date: 20250506
  Transmission Date: 20250717
  Serious: Yes (Disabling, Other)
  Sender: PFIZER
  Company Number: US-PFIZER INC-202500093821

PATIENT
  Age: 59 Year
  Sex: Female

DRUGS (7)
  1. IBRANCE [Suspect]
     Active Substance: PALBOCICLIB
     Route: 048
     Dates: start: 20250219
  2. ALLEGRA [Concomitant]
     Active Substance: FEXOFENADINE HYDROCHLORIDE
  3. ANASTROZOLE [Concomitant]
     Active Substance: ANASTROZOLE
  4. ASPIRIN [Concomitant]
     Active Substance: ASPIRIN
  5. IBUPROFEN [Concomitant]
     Active Substance: IBUPROFEN
  6. TYLENOL [Concomitant]
     Active Substance: ACETAMINOPHEN
  7. ZOLEDRONIC ACID [Concomitant]
     Active Substance: ZOLEDRONIC ACID

REACTIONS (6)
  - Pelvic fracture [Not Recovered/Not Resolved]
  - Body height decreased [Not Recovered/Not Resolved]
  - Neutrophil count abnormal [Recovering/Resolving]
  - Brain fog [Not Recovered/Not Resolved]
  - Muscle spasms [Not Recovered/Not Resolved]
  - Gastrooesophageal reflux disease [Not Recovered/Not Resolved]
